FAERS Safety Report 9920856 (Version 8)
Quarter: 2017Q2

REPORT INFORMATION
  Report Type: Report from Study
  Country: BR (occurrence: BR)
  Receive Date: 20140225
  Receipt Date: 20170410
  Transmission Date: 20170830
  Serious: Yes (Hospitalization, Other)
  Sender: FDA-Public Use
  Company Number: BR-ROCHE-1069900

PATIENT
  Sex: Female
  Weight: 56 kg

DRUGS (33)
  1. PREDNISONE. [Concomitant]
     Active Substance: PREDNISONE
     Route: 065
  2. PREBICTAL [Concomitant]
     Active Substance: PREGABALIN
     Route: 065
  3. VELIJA [Concomitant]
     Active Substance: DULOXETINE HYDROCHLORIDE
     Route: 065
  4. TRIMEBUTINE MALEATE [Concomitant]
     Active Substance: TRIMEBUTINE MALEATE
     Route: 065
  5. REVANGE (ACETAMINOPHEN/TRAMADOL HYDROCHLORIDE) [Concomitant]
     Indication: PAIN
     Route: 065
  6. TRAMADOL. [Concomitant]
     Active Substance: TRAMADOL
  7. CLONAZEPAM. [Concomitant]
     Active Substance: CLONAZEPAM
     Route: 065
  8. ACTEMRA [Suspect]
     Active Substance: TOCILIZUMAB
     Indication: RHEUMATOID ARTHRITIS
     Route: 042
     Dates: start: 20111001
  9. LYRICA [Concomitant]
     Active Substance: PREGABALIN
     Route: 065
  10. ROSUVASTATIN CALCIUM. [Concomitant]
     Active Substance: ROSUVASTATIN CALCIUM
     Route: 065
  11. SELOZOK [Concomitant]
     Active Substance: METOPROLOL SUCCINATE
     Indication: HYPERTENSION
     Route: 065
  12. ACTEMRA [Suspect]
     Active Substance: TOCILIZUMAB
     Route: 042
     Dates: start: 201204
  13. ACTEMRA [Suspect]
     Active Substance: TOCILIZUMAB
     Route: 042
     Dates: start: 20131201, end: 20140101
  14. OMEPRAZOLE. [Concomitant]
     Active Substance: OMEPRAZOLE
     Route: 065
  15. FUROSEMIDE. [Concomitant]
     Active Substance: FUROSEMIDE
     Route: 065
  16. ATORVASTATIN CALCIUM. [Concomitant]
     Active Substance: ATORVASTATIN CALCIUM
     Route: 065
  17. TROPINAL [Concomitant]
  18. TORVALIPIN [Concomitant]
     Active Substance: ATORVASTATIN
     Route: 065
  19. AMLODIPINE [Concomitant]
     Active Substance: AMLODIPINE BESYLATE
     Indication: HYPERTENSION
     Route: 065
  20. REVANGE (ACETAMINOPHEN/TRAMADOL HYDROCHLORIDE) [Concomitant]
     Indication: ARTHRALGIA
  21. ATENOLOL. [Concomitant]
     Active Substance: ATENOLOL
     Route: 065
  22. OMEPRAZOLE. [Concomitant]
     Active Substance: OMEPRAZOLE
     Route: 065
  23. BEZAFIBRATE [Concomitant]
     Active Substance: BEZAFIBRATE
     Route: 065
  24. ACTEMRA [Suspect]
     Active Substance: TOCILIZUMAB
     Route: 042
     Dates: start: 201205
  25. ATENSINA [Concomitant]
     Active Substance: CLONIDINE
     Route: 065
  26. DIURIX [Concomitant]
     Active Substance: FUROSEMIDE
     Route: 065
  27. OMEPRAZOLE. [Concomitant]
     Active Substance: OMEPRAZOLE
     Route: 065
  28. LOSARTAN POTASSIUM. [Concomitant]
     Active Substance: LOSARTAN POTASSIUM
     Indication: HYPERTENSION
     Route: 065
  29. PREGABALIN. [Concomitant]
     Active Substance: PREGABALIN
     Route: 065
  30. ACTEMRA [Suspect]
     Active Substance: TOCILIZUMAB
     Route: 042
     Dates: start: 201111
  31. BENICAR [Concomitant]
     Active Substance: OLMESARTAN MEDOXOMIL
     Route: 065
  32. APRESOLINE HYDROCHLORIDE [Concomitant]
     Active Substance: HYDRALAZINE HYDROCHLORIDE
     Indication: HYPERTENSION
     Route: 065
  33. PARACETAMOL [Concomitant]
     Active Substance: ACETAMINOPHEN

REACTIONS (16)
  - Pruritus [Recovering/Resolving]
  - Influenza [Unknown]
  - Spinal osteoarthritis [Recovering/Resolving]
  - Renal disorder [Not Recovered/Not Resolved]
  - Feeling hot [Recovering/Resolving]
  - Rash erythematous [Recovering/Resolving]
  - Dermatitis allergic [Recovering/Resolving]
  - Weight decreased [Not Recovered/Not Resolved]
  - Bone loss [Recovering/Resolving]
  - Back pain [Not Recovered/Not Resolved]
  - Hypertension [Not Recovered/Not Resolved]
  - Spinal disorder [Unknown]
  - Haemorrhage [Unknown]
  - Peripheral swelling [Recovering/Resolving]
  - Urinary tract infection [Unknown]
  - Skin disorder [Unknown]
